FAERS Safety Report 9551968 (Version 1)
Quarter: 2013Q3

REPORT INFORMATION
  Report Type: Spontaneous
  Country: US (occurrence: None)
  Receive Date: 20130923
  Receipt Date: 20130923
  Transmission Date: 20140515
  Serious: Yes (Hospitalization)
  Sender: FDA-Public Use
  Company Number: SYM-2013-10772

PATIENT
  Age: 5 Year
  Sex: Female

DRUGS (1)
  1. BUPROPION HYDROCHLORIDE [Suspect]
     Indication: PRODUCT USED FOR UNKNOWN INDICATION
     Route: 048

REACTIONS (12)
  - Overdose [None]
  - Carbon monoxide poisoning [None]
  - Vomiting [None]
  - Convulsion [None]
  - Urinary incontinence [None]
  - Mydriasis [None]
  - Agitation [None]
  - Gait disturbance [None]
  - Headache [None]
  - Leukocytosis [None]
  - Drug level increased [None]
  - Accidental exposure to product by child [None]
